FAERS Safety Report 7941716-X (Version None)
Quarter: 2011Q4

REPORT INFORMATION
  Report Type: 
  Country: None (occurrence: None)
  Receive Date: 20111128
  Receipt Date: 20111128
  Transmission Date: 20120403
  Serious: Yes (Other)
  Sender: FDA-Public Use
  Company Number: None

PATIENT
  Age: 30 Year
  Sex: Female

DRUGS (1)
  1. CYCLOBENZAPRINE [Suspect]
     Indication: MUSCLE RELAXANT THERAPY
     Dosage: 1 DOSE
     Route: 048
     Dates: start: 20111125, end: 20111125

REACTIONS (3)
  - MIGRAINE [None]
  - ROAD TRAFFIC ACCIDENT [None]
  - PAIN [None]
